FAERS Safety Report 5800807-X (Version None)
Quarter: 2008Q3

REPORT INFORMATION
  Report Type: 
  Country: None (occurrence: None)
  Receive Date: 20080703
  Receipt Date: 20080620
  Transmission Date: 20090109
  Serious: Yes (Life-Threatening, Hospitalization)
  Sender: FDA-Public Use
  Company Number: US-MERCK-0712USA01924

PATIENT
  Age: 57 Year
  Sex: Male

DRUGS (5)
  1. SINGULAIR [Suspect]
     Indication: ASTHMA
     Route: 048
     Dates: start: 20061016, end: 20061106
  2. ZAFIRLUKAST [Suspect]
     Route: 048
     Dates: start: 20061106, end: 20061116
  3. ALPRAZOLAM [Concomitant]
     Route: 048
  4. AMLODIPINE BESYLATE [Concomitant]
     Route: 048
  5. NABUMETONE [Concomitant]
     Route: 048

REACTIONS (10)
  - ALCOHOL USE [None]
  - ANAEMIA HAEMOLYTIC AUTOIMMUNE [None]
  - DYSPNOEA AT REST [None]
  - HEPATOMEGALY [None]
  - JAUNDICE [None]
  - OCULAR ICTERUS [None]
  - OEDEMA PERIPHERAL [None]
  - OXYGEN SATURATION DECREASED [None]
  - RESPIRATORY RATE INCREASED [None]
  - WHEEZING [None]
